FAERS Safety Report 7897514 (Version 2)
Quarter: 2012Q4

REPORT INFORMATION
  Report Type: 
  Country: VE (occurrence: VE)
  Receive Date: 20110413
  Receipt Date: 20121214
  Transmission Date: 20130627
  Serious: Yes (Death)
  Sender: FDA-Public Use
  Company Number: PHHY2011VE30210

PATIENT
  Sex: Male

DRUGS (2)
  1. DIOVAN [Suspect]
     Indication: HYPERTENSION
     Dosage: 160 mg, QD
     Route: 048
  2. DIOVAN [Suspect]

REACTIONS (2)
  - Gastrointestinal carcinoma [Fatal]
  - Salivary gland cancer [Fatal]
